FAERS Safety Report 10408892 (Version 1)
Quarter: 2014Q3

REPORT INFORMATION
  Report Type: Spontaneous
  Country: IT (occurrence: None)
  Receive Date: 20140822
  Receipt Date: 20140822
  Transmission Date: 20150326
  Serious: Yes (Hospitalization)
  Sender: FDA-Public Use
  Company Number: AUR-APL-2014-08789

PATIENT
  Age: 78 Year
  Sex: Female

DRUGS (8)
  1. LEVOFLOXACIN 500MG (LEVOFLOXACIN) UNKNOWN,  500MG [Suspect]
     Active Substance: LEVOFLOXACIN
     Indication: PNEUMONITIS
     Route: 048
     Dates: start: 20140702, end: 20140705
  2. ZIMOX /00249602/ (AMOXICILLIN TRIHYDRATE) [Concomitant]
  3. CARDURA [Concomitant]
     Active Substance: DOXAZOSIN MESYLATE
  4. ANTRA?/00661201/ (OMEPRAZOLE) [Concomitant]
  5. IPERTEN (MANIDIPINE HYDROCHLORIDE) [Concomitant]
  6. PRAZENE (PRAZEPAM) [Concomitant]
  7. RYTMONORM (PROPAFENONE HYDROCHLORIDE) [Concomitant]
  8. CEFTRIAXONE. [Concomitant]
     Active Substance: CEFTRIAXONE

REACTIONS (2)
  - Malaise [None]
  - Diarrhoea [None]

NARRATIVE: CASE EVENT DATE: 20140705
